FAERS Safety Report 15770075 (Version 1)
Quarter: 2018Q4

REPORT INFORMATION
  Report Type: Spontaneous
  Country: JP (occurrence: JP)
  Receive Date: 20181228
  Receipt Date: 20181228
  Transmission Date: 20190205
  Serious: Yes (Hospitalization)
  Sender: FDA-Public Use
  Company Number: JP-EISAI MEDICAL RESEARCH-EC-2018-044900

PATIENT
  Age: 86 Year
  Sex: Female
  Weight: 34 kg

DRUGS (1)
  1. LENVIMA [Suspect]
     Active Substance: LENVATINIB
     Indication: HEPATOCELLULAR CARCINOMA
     Route: 048
     Dates: start: 20180823, end: 20181210

REACTIONS (2)
  - Hypertension [Recovered/Resolved]
  - Hepatic hydrothorax [Not Recovered/Not Resolved]

NARRATIVE: CASE EVENT DATE: 20180830
